FAERS Safety Report 20244279 (Version 1)
Quarter: 2021Q4

REPORT INFORMATION
  Report Type: Spontaneous
  Country: US (occurrence: US)
  Receive Date: 20211229
  Receipt Date: 20211229
  Transmission Date: 20220303
  Serious: Yes (Other)
  Sender: FDA-Public Use
  Company Number: US-SA-2021SA425577

PATIENT
  Age: 75 Year
  Sex: Female

DRUGS (2)
  1. MULTAQ [Suspect]
     Active Substance: DRONEDARONE
     Dosage: UNK
  2. IMBRUVICA [Concomitant]
     Active Substance: IBRUTINIB
     Indication: Chronic lymphocytic leukaemia
     Dosage: MISSED 2 DOSES
     Route: 048
     Dates: start: 20160430

REACTIONS (15)
  - Atrial fibrillation [Unknown]
  - Haemorrhage [Unknown]
  - Muscle strain [Unknown]
  - Blood iron abnormal [Unknown]
  - Pain [Unknown]
  - Red blood cell count decreased [Unknown]
  - Stomatitis [Unknown]
  - Feeling abnormal [Unknown]
  - Swelling [Unknown]
  - Tension [Unknown]
  - Headache [Unknown]
  - Joint range of motion decreased [Unknown]
  - Weight decreased [Unknown]
  - Lymphocyte count abnormal [Unknown]
  - Intentional product misuse [Unknown]

NARRATIVE: CASE EVENT DATE: 20210501
